FAERS Safety Report 20822634 (Version 2)
Quarter: 2022Q2

REPORT INFORMATION
  Report Type: Report from Study
  Country: US (occurrence: None)
  Receive Date: 20220512
  Receipt Date: 20220608
  Transmission Date: 20220721
  Serious: Yes (Hospitalization)
  Sender: FDA-Public Use
  Company Number: US-Eisai Medical Research-EC-2022-112794

PATIENT
  Age: 67 Year
  Sex: Female

DRUGS (5)
  1. LENVIMA [Suspect]
     Active Substance: LENVATINIB
     Indication: Endometrial cancer
     Route: 048
     Dates: start: 20220401, end: 202204
  2. LENVIMA [Suspect]
     Active Substance: LENVATINIB
     Route: 048
     Dates: start: 202204, end: 20220425
  3. LENVIMA [Suspect]
     Active Substance: LENVATINIB
     Route: 048
     Dates: start: 20220502, end: 202205
  4. FENTANYL [Suspect]
     Active Substance: FENTANYL
     Indication: Product used for unknown indication
     Dosage: DOSE AND FREQUENCY UNKNOWN
     Route: 065
  5. KEYTRUDA [Concomitant]
     Active Substance: PEMBROLIZUMAB

REACTIONS (7)
  - Confusional state [Unknown]
  - Feeling abnormal [Unknown]
  - Blood pressure increased [Unknown]
  - Decreased appetite [Unknown]
  - Nausea [Unknown]
  - Vomiting [Unknown]
  - Cancer pain [Unknown]

NARRATIVE: CASE EVENT DATE: 20220101
